FAERS Safety Report 8362094-0 (Version None)
Quarter: 2012Q2

REPORT INFORMATION
  Report Type: 
  Country: None (occurrence: None)
  Receive Date: 20120515
  Receipt Date: 20120509
  Transmission Date: 20120825
  Serious: Yes (Other)
  Sender: FDA-Public Use
  Company Number: CHPA2012US009187

PATIENT
  Age: 65 Year
  Sex: Female

DRUGS (1)
  1. VOLTAREN [Suspect]
     Indication: ARTHRITIS
     Dosage: 2 G, QID
     Route: 061

REACTIONS (3)
  - UNDERDOSE [None]
  - THYROID NEOPLASM [None]
  - DRUG ADMINISTERED AT INAPPROPRIATE SITE [None]
